FAERS Safety Report 4950583-8 (Version None)
Quarter: 2006Q1

REPORT INFORMATION
  Report Type: 
  Country: None (occurrence: None)
  Receive Date: 20060321
  Receipt Date: 20060321
  Transmission Date: 20060701
  Serious: Yes (Hospitalization)
  Sender: FDA-Public Use
  Company Number: None

PATIENT
  Age: 19 Year
  Sex: Female

DRUGS (1)
  1. TOPAMAX [Suspect]
     Indication: CONVULSION
     Dosage: 100 MG QDAY PO
     Route: 048

REACTIONS (1)
  - NEPHROLITHIASIS [None]
